FAERS Safety Report 6059912-8 (Version None)
Quarter: 2009Q1

REPORT INFORMATION
  Report Type: 
  Country: None (occurrence: None)
  Receive Date: 20090130
  Receipt Date: 20090123
  Transmission Date: 20090719
  Serious: Yes (Other)
  Sender: FDA-Public Use
  Company Number: CA-ASTRAZENECA-2008UW14232

PATIENT
  Age: 45 Year
  Sex: Female

DRUGS (6)
  1. SEROQUEL [Suspect]
     Indication: SCHIZOPHRENIA
     Dosage: 100 MG IN AM, 100 MG AT 5 PM AND 400 MG HS
     Route: 048
     Dates: start: 20060101
  2. DIANE - 35 [Concomitant]
     Indication: HAIR GROWTH ABNORMAL
     Route: 048
     Dates: start: 20000101
  3. CLOZARIL [Concomitant]
     Indication: SCHIZOPHRENIA
     Route: 048
     Dates: start: 20000101
  4. ATIVAN [Concomitant]
     Indication: ANXIETY
  5. POTASSIUM SUPPLEMENTS [Concomitant]
  6. RETUXAB [Concomitant]
     Indication: NON-HODGKIN'S LYMPHOMA
     Dosage: Q3 MONTHS
     Route: 048

REACTIONS (9)
  - ABDOMINAL PAIN [None]
  - ANXIETY [None]
  - BACK PAIN [None]
  - CATARACT [None]
  - HAIR GROWTH ABNORMAL [None]
  - HALLUCINATION, AUDITORY [None]
  - TACHYCARDIA [None]
  - VISION BLURRED [None]
  - VISUAL FIELD DEFECT [None]
